FAERS Safety Report 15279775 (Version 1)
Quarter: 2018Q4

REPORT INFORMATION
  Report Type: Spontaneous
  Country: US (occurrence: US)
  Receive Date: 20180815
  Receipt Date: 20180815
  Transmission Date: 20190204
  Serious: Yes (Hospitalization, Disabling, Other)
  Sender: FDA-Public Use
  Company Number: US-HIKMA PHARMACEUTICALS USA INC.-US-H14001-18-06870

PATIENT
  Age: 10 Year
  Sex: Male
  Weight: 20 kg

DRUGS (4)
  1. EPOGEN [Concomitant]
     Active Substance: ERYTHROPOIETIN
     Indication: ANAEMIA
     Dosage: 10 MG/KG
     Route: 065
  2. FOLIC ACID. [Concomitant]
     Active Substance: FOLIC ACID
     Indication: FACTOR V LEIDEN MUTATION
     Dosage: 10 MG/KG
     Route: 065
  3. IRON SUPPLEMENTATION [Concomitant]
     Indication: ANAEMIA
     Dosage: 10 MG/KG
     Route: 065
  4. ALLOPURINOL. [Suspect]
     Active Substance: ALLOPURINOL
     Indication: HYPOXANTHINE-GUANINE PHOSPHORIBOSYL TRANSFERASE DEFICIENCY
     Dosage: 10 MG/KG
     Route: 065

REACTIONS (3)
  - Stag horn calculus [Recovered/Resolved]
  - Nephrocalcinosis [Recovering/Resolving]
  - Overdose [Unknown]
